FAERS Safety Report 15689117 (Version 2)
Quarter: 2019Q1

REPORT INFORMATION
  Report Type: Spontaneous
  Country: IE (occurrence: IE)
  Receive Date: 20181205
  Receipt Date: 20190114
  Transmission Date: 20190417
  Serious: Yes (Other)
  Sender: FDA-Public Use
  Company Number: IE-EMD SERONO-E2B_90064906

PATIENT
  Age: 30 Year
  Sex: Female

DRUGS (9)
  1. FEMATAB [Concomitant]
     Route: 048
     Dates: start: 20180914, end: 20180923
  2. UTROGESTAN [Concomitant]
     Active Substance: PROGESTERONE
     Indication: PRODUCT USED FOR UNKNOWN INDICATION
     Route: 048
     Dates: start: 20181012, end: 20181205
  3. MENOPUR [Suspect]
     Active Substance: FOLLITROPIN\LUTEINIZING HORMONE
     Indication: CONTROLLED OVARIAN STIMULATION
     Dosage: POWDER AND SOLVENT FOR SOLUTION FOR INJECTION
     Route: 058
     Dates: start: 20180925, end: 20181008
  4. CETROTIDE [Concomitant]
     Active Substance: CETRORELIX ACETATE
     Indication: PRODUCT USED FOR UNKNOWN INDICATION
     Dosage: POWDER AND SOLVENT FOR SOLUTION FOR INJECTION
     Route: 058
     Dates: start: 20180930, end: 20181008
  5. GONASI HCG [Concomitant]
     Indication: PRODUCT USED FOR UNKNOWN INDICATION
     Dosage: 10,000 STAT DOSE
     Route: 058
     Dates: start: 20181008
  6. GONAL-F [Suspect]
     Active Substance: FOLLITROPIN
     Dosage: VIAL
     Route: 058
     Dates: start: 20180927, end: 20181008
  7. GONAL-F [Suspect]
     Active Substance: FOLLITROPIN
     Indication: CONTROLLED OVARIAN STIMULATION
     Dosage: POWDER AND SOLVENT FOR SOLUTION FOR INJECTION, VIAL
     Route: 058
     Dates: start: 20180925, end: 20180927
  8. FOLIC ACID. [Concomitant]
     Active Substance: FOLIC ACID
     Indication: PRODUCT USED FOR UNKNOWN INDICATION
     Dates: end: 20181219
  9. FEMATAB [Concomitant]
     Indication: PRODUCT USED FOR UNKNOWN INDICATION

REACTIONS (5)
  - Ovarian hyperstimulation syndrome [Recovered/Resolved]
  - Abdominal pain [Unknown]
  - Abdominal distension [Recovered/Resolved]
  - Dyspnoea exertional [Recovered/Resolved]
  - Abdominal discomfort [Recovered/Resolved]

NARRATIVE: CASE EVENT DATE: 20181023
